FAERS Safety Report 18583078 (Version 1)
Quarter: 2020Q4

REPORT INFORMATION
  Report Type: Report from Study
  Country: FR (occurrence: FR)
  Receive Date: 20201206
  Receipt Date: 20201206
  Transmission Date: 20210114
  Serious: Yes (Hospitalization)
  Sender: FDA-Public Use
  Company Number: FR-ROCHE-2721020

PATIENT
  Age: 63 Year
  Sex: Male
  Weight: 76 kg

DRUGS (5)
  1. OBINUTUZUMAB. [Suspect]
     Active Substance: OBINUTUZUMAB
     Indication: B-CELL LYMPHOMA REFRACTORY
     Dosage: THE LAST DOSE OF  OBINUTUZUMAB PRIOR TO SERIOUS ADVERSE EVENT (SAE) WAS ON 01/OCT/2020.?1000 MG ON D
     Route: 042
     Dates: start: 20190219
  2. ZELITREX [Concomitant]
     Active Substance: VALACYCLOVIR HYDROCHLORIDE
     Indication: PROPHYLAXIS
     Dates: start: 20190220
  3. BGB-3111 [Suspect]
     Active Substance: ZANUBRUTINIB
     Indication: B-CELL LYMPHOMA REFRACTORY
     Dosage: THE LAST DOSE OF  BGB-3111 PRIOR TO SERIOUS ADVERSE EVENT (SAE) WAS ON 24/NOV/2020
     Route: 048
     Dates: start: 20190219
  4. BACTRIM [Concomitant]
     Active Substance: SULFAMETHOXAZOLE\TRIMETHOPRIM
     Indication: PROPHYLAXIS
     Dosage: ONE
     Dates: start: 20190220
  5. FOLINORAL [Concomitant]
     Active Substance: LEUCOVORIN CALCIUM
     Indication: PROPHYLAXIS
     Dates: start: 20190220

REACTIONS (2)
  - Lung disorder [Not Recovered/Not Resolved]
  - Pyrexia [Not Recovered/Not Resolved]

NARRATIVE: CASE EVENT DATE: 20201116
